FAERS Safety Report 10197615 (Version 2)
Quarter: 2014Q2

REPORT INFORMATION
  Report Type: Spontaneous
  Country: US (occurrence: US)
  Receive Date: 20140527
  Receipt Date: 20140604
  Transmission Date: 20141212
  Serious: Yes (Other)
  Sender: FDA-Public Use
  Company Number: US-PERRIGO-14US005179

PATIENT
  Age: 3 Year
  Sex: Male
  Weight: 13.61 kg

DRUGS (2)
  1. IBUPROFEN CHILD BUBBLEGUM 20 MG/ML 166 [Suspect]
     Indication: PYREXIA
     Dosage: 100 MG, TWICE IN 8 HOURS
     Route: 048
     Dates: start: 20140502, end: 20140502
  2. TYLENOL                            /00020001/ [Concomitant]
     Indication: PYREXIA
     Dosage: UNK, ALTERNATED WITH IBUPROFEN
     Route: 048
     Dates: start: 20140502

REACTIONS (2)
  - Febrile convulsion [Recovered/Resolved]
  - Drug ineffective [Unknown]
